FAERS Safety Report 17329699 (Version 1)
Quarter: 2020Q1

REPORT INFORMATION
  Report Type: Spontaneous
  Country: US (occurrence: US)
  Receive Date: 20200127
  Receipt Date: 20200127
  Transmission Date: 20200409
  Serious: Yes (Death)
  Sender: FDA-Public Use
  Company Number: None

PATIENT
  Age: 85 Year
  Sex: Male

DRUGS (14)
  1. ESZOPICLONE. [Concomitant]
     Active Substance: ESZOPICLONE
  2. CARVEDILOL. [Concomitant]
     Active Substance: CARVEDILOL
  3. DIGOXIN. [Concomitant]
     Active Substance: DIGOXIN
  4. LORAZEPAM. [Concomitant]
     Active Substance: LORAZEPAM
  5. CINACALCET. [Suspect]
     Active Substance: CINACALCET
     Indication: PRODUCT USED FOR UNKNOWN INDICATION
     Route: 048
     Dates: start: 20190929
  6. METOLAZONE. [Concomitant]
     Active Substance: METOLAZONE
  7. TORSEMIDE. [Concomitant]
     Active Substance: TORSEMIDE
  8. ELIQUIS [Concomitant]
     Active Substance: APIXABAN
  9. LEVOTHYROXINE. [Concomitant]
     Active Substance: LEVOTHYROXINE
  10. OXYBUTYNIN ER [Concomitant]
     Active Substance: OXYBUTYNIN
  11. POTASSIUM CL [Concomitant]
     Active Substance: POTASSIUM CHLORIDE
  12. ALLOPURINOL. [Concomitant]
     Active Substance: ALLOPURINOL
  13. QUETIAPINE. [Concomitant]
     Active Substance: QUETIAPINE
  14. TAMSULOSIN [Concomitant]
     Active Substance: TAMSULOSIN

REACTIONS (1)
  - Death [None]

NARRATIVE: CASE EVENT DATE: 20200121
